FAERS Safety Report 4916544-X (Version None)
Quarter: 2006Q1

REPORT INFORMATION
  Report Type: 
  Country: None (occurrence: None)
  Receive Date: 20060216
  Receipt Date: 20060216
  Transmission Date: 20060701
  Serious: Yes (Other)
  Sender: FDA-Public Use
  Company Number: None

PATIENT
  Sex: Female

DRUGS (2)
  1. GABAPENTIN [Suspect]
     Indication: BACK PAIN
     Dosage: 800MG  TID
     Dates: start: 20000101
  2. GABAPENTIN [Suspect]
     Indication: RADICULOPATHY
     Dosage: 800MG  TID
     Dates: start: 20000101

REACTIONS (1)
  - MIGRAINE WITHOUT AURA [None]
